FAERS Safety Report 4343950-7 (Version None)
Quarter: 2004Q2

REPORT INFORMATION
  Report Type: 
  Country: None (occurrence: None)
  Receive Date: 20040419
  Receipt Date: 20040407
  Transmission Date: 20050107
  Serious: Yes (Hospitalization)
  Sender: FDA-Public Use
  Company Number: A02200401264

PATIENT
  Age: 80 Year
  Sex: Female

DRUGS (9)
  1. STILNOX- (ZOLPIDEM) - TABLET- 10 MG [Suspect]
     Indication: SLEEP DISORDER
     Dosage: 10 MG OD,  ORAL
     Route: 048
     Dates: start: 20020101, end: 20040206
  2. TOPALGIC - (TRAMADOL HYDROCHLORIDE) - CAPSULE - 50 MG [Suspect]
     Indication: ARTHRALGIA
     Dosage: 50 MG QID, ORAL
     Route: 048
     Dates: start: 20030101, end: 20040202
  3. CORVASAL - (MOLSIDOMINE) - TABLET - UNIT DOSE : UNKNOWN [Suspect]
     Indication: ANXIETY
     Dosage: 1 DF TID,  ORAL
     Route: 048
     Dates: start: 20000101, end: 20040206
  4. ATHYMIL - (MIANSERIN HYDROCHLORIDE) TABLET - 30 MG [Suspect]
     Indication: DEPRESSION
     Dosage: 30 MG OD,  ORAL
     Route: 048
     Dates: start: 20031212, end: 20040202
  5. OMEPRAZOLE [Suspect]
     Indication: HIATUS HERNIA
     Dosage: 20 MG OD, ORAL
     Route: 048
     Dates: start: 20020101, end: 20040206
  6. ART 50 - (DIACEREIN) - CAPSULE - 50 MG [Suspect]
     Indication: ARTHRALGIA
     Dosage: 50 MG BID, ORAL
     Route: 048
     Dates: start: 20030101, end: 20040201
  7. MOTILIUM - (DOMPERIDONE) - TABLET - 20 MG [Suspect]
     Indication: DYSPEPSIA
     Dosage: ORAL
     Route: 048
     Dates: start: 20031219, end: 20040202
  8. ASPIRIN [Concomitant]
  9. SECTRAL [Concomitant]

REACTIONS (6)
  - AGRANULOCYTOSIS [None]
  - C-REACTIVE PROTEIN INCREASED [None]
  - HAEMOGLOBIN DECREASED [None]
  - LUNG DISORDER [None]
  - MYELOID MATURATION ARREST [None]
  - SEPSIS [None]
